FAERS Safety Report 6736993-7 (Version None)
Quarter: 2010Q2

REPORT INFORMATION
  Report Type: 
  Country: None (occurrence: None)
  Receive Date: 20100523
  Receipt Date: 20100205
  Transmission Date: 20101027
  Serious: No
  Sender: FDA-Public Use
  Company Number: US-ALLERGAN-1001562US

PATIENT
  Sex: Female

DRUGS (7)
  1. COMBIGAN [Suspect]
     Indication: GLAUCOMA
     Dosage: UNK
  2. OMNIPRED [Concomitant]
  3. XIBROM [Concomitant]
  4. VIGAMOX [Concomitant]
  5. SYNTHROID [Concomitant]
  6. FISH OIL [Concomitant]
  7. DAILY VITAMINS [Concomitant]

REACTIONS (4)
  - EYE IRRITATION [None]
  - EYE PAIN [None]
  - EYE PRURITUS [None]
  - OCULAR HYPERAEMIA [None]
